FAERS Safety Report 25881632 (Version 1)
Quarter: 2025Q4

REPORT INFORMATION
  Report Type: Spontaneous
  Country: EU (occurrence: EU)
  Receive Date: 20251005
  Receipt Date: 20251005
  Transmission Date: 20260117
  Serious: Yes (Other)
  Sender: SANOFI AVENTIS
  Company Number: None

PATIENT
  Age: 58 Year
  Sex: Male
  Weight: 85 kg

DRUGS (1)
  1. CAPRELSA [Suspect]
     Active Substance: VANDETANIB
     Indication: Thyroid cancer
     Dosage: UNK
     Route: 048
     Dates: start: 20170730, end: 20220704

REACTIONS (2)
  - Corneal deposits [Unknown]
  - Cataract [Unknown]

NARRATIVE: CASE EVENT DATE: 20180301
